FAERS Safety Report 4387424-6 (Version None)
Quarter: 2004Q2

REPORT INFORMATION
  Report Type: 
  Country: None (occurrence: None)
  Receive Date: 20040623
  Receipt Date: 20040608
  Transmission Date: 20050107
  Serious: Yes (Hospitalization, Disabling, Other)
  Sender: FDA-Public Use
  Company Number: US_0405103349

PATIENT
  Age: 55 Year
  Sex: Female
  Weight: 86 kg

DRUGS (7)
  1. EVISTA [Suspect]
     Indication: OSTEOPOROSIS
     Dosage: 60 MG/1 DAY
     Dates: start: 20020101, end: 20020701
  2. OXYCONTIN [Concomitant]
  3. PERCOCET [Concomitant]
  4. VALIUM [Concomitant]
  5. SYNTHROID [Concomitant]
  6. PHENERGAN [Concomitant]
  7. LOMOTIL [Concomitant]

REACTIONS (9)
  - ARTHRALGIA [None]
  - DEEP VEIN THROMBOSIS [None]
  - ERYTHEMA [None]
  - FALL [None]
  - OEDEMA PERIPHERAL [None]
  - PAIN IN EXTREMITY [None]
  - SKIN STRIAE [None]
  - SWELLING [None]
  - VASCULAR RUPTURE [None]
